FAERS Safety Report 5985914-3 (Version None)
Quarter: 2008Q4

REPORT INFORMATION
  Report Type: 
  Country: None (occurrence: None)
  Receive Date: 20081208
  Receipt Date: 20081208
  Transmission Date: 20090506
  Serious: Yes (Other)
  Sender: FDA-Public Use
  Company Number: None

PATIENT
  Age: 58 Year
  Sex: Male
  Weight: 83.0083 kg

DRUGS (3)
  1. CARVEDILOL [Suspect]
     Indication: CONGESTIVE CARDIOMYOPATHY
     Dosage: 625MG PO BID
     Route: 048
     Dates: start: 20071101
  2. CARVEDILOL [Suspect]
     Indication: RENAL DISORDER
     Dosage: 625MG PO BID
     Route: 048
     Dates: start: 20071101
  3. CARVEDILOL [Suspect]
     Indication: TYPE 1 DIABETES MELLITUS
     Dosage: 625MG PO BID
     Route: 048
     Dates: start: 20071101

REACTIONS (2)
  - NAUSEA [None]
  - VOMITING [None]
